FAERS Safety Report 11998971 (Version 1)
Quarter: 2016Q1

REPORT INFORMATION
  Report Type: Report from Study
  Country: BR (occurrence: BR)
  Receive Date: 20160203
  Receipt Date: 20160203
  Transmission Date: 20160526
  Serious: Yes (Hospitalization, Other)
  Sender: FDA-Public Use
  Company Number: BR-ROCHE-1431943

PATIENT
  Sex: Female
  Weight: 54 kg

DRUGS (12)
  1. PARACETAMOL [Concomitant]
     Active Substance: ACETAMINOPHEN
  2. OMEPRAZOLE. [Concomitant]
     Active Substance: OMEPRAZOLE
     Indication: GASTRITIS
     Dosage: 2 TABLETS IN THE MORNING
     Route: 065
  3. ROHYDORM [Concomitant]
     Dosage: AT NIGHT AS A SLEEP INDUCER
     Route: 065
  4. REUQUINOL [Concomitant]
     Active Substance: HYDROXYCHLOROQUINE SULFATE
     Route: 065
  5. METHOTREXATE [Concomitant]
     Active Substance: METHOTREXATE
     Route: 065
  6. MABTHERA [Suspect]
     Active Substance: RITUXIMAB
     Route: 042
     Dates: start: 20131122, end: 20140515
  7. SIMVASTATIN. [Concomitant]
     Active Substance: SIMVASTATIN
     Dosage: INDICATION UNSPECIFIED CHOLESTEROL DISORDER.
     Route: 065
  8. AZULFIDINE [Concomitant]
     Active Substance: SULFASALAZINE
     Indication: RHEUMATOID ARTHRITIS
     Dosage: TWO IN THE MORNING AND TWO AT NIGHT
     Route: 065
  9. MABTHERA [Suspect]
     Active Substance: RITUXIMAB
     Indication: RHEUMATOID ARTHRITIS
     Dosage: MOST RECENT DOSE RECEIVED IN MAY/2014
     Route: 042
     Dates: start: 201312, end: 201405
  10. SERTRALINE [Concomitant]
     Active Substance: SERTRALINE HYDROCHLORIDE
     Route: 065
  11. PRISTIQ EXTENDED RELEASE [Concomitant]
     Active Substance: DESVENLAFAXINE SUCCINATE
  12. VELIJA [Concomitant]
     Active Substance: DULOXETINE HYDROCHLORIDE
     Indication: FIBROMYALGIA
     Dosage: IN THE MORNING
     Route: 065

REACTIONS (7)
  - Cough [Recovered/Resolved]
  - Non-Hodgkin^s lymphoma [Unknown]
  - Laryngeal oedema [Recovered/Resolved]
  - Patellofemoral pain syndrome [Unknown]
  - Anaphylactic shock [Recovered/Resolved]
  - Musculoskeletal disorder [Not Recovered/Not Resolved]
  - Drug ineffective [Unknown]
